FAERS Safety Report 17278023 (Version 3)
Quarter: 2020Q1

REPORT INFORMATION
  Report Type: Spontaneous
  Country: DE (occurrence: DE)
  Receive Date: 20200116
  Receipt Date: 20200302
  Transmission Date: 20200409
  Serious: Yes (Other)
  Sender: FDA-Public Use
  Company Number: DE-MYLANLABS-2020M1004351

PATIENT
  Age: 82 Year
  Sex: Male

DRUGS (9)
  1. IRBESARTAN. [Concomitant]
     Active Substance: IRBESARTAN
     Indication: ANTICOAGULANT THERAPY
  2. BISOPROLOL [Concomitant]
     Active Substance: BISOPROLOL
     Dosage: 0.5 DF, QD (1/2 TABLET IN THE MORNING)
     Route: 065
  3. ELIQUIS [Concomitant]
     Active Substance: APIXABAN
     Indication: ANTICOAGULANT THERAPY
     Dosage: 0.5 DOSAGE FORM, BID (1 DF, BID (1 TABLET IN THE MORNING AND ONE IN THE EVENING)  )
  4. TAMSULOSIN [Suspect]
     Active Substance: TAMSULOSIN
     Indication: BENIGN PROSTATIC HYPERPLASIA
     Dosage: 1 DOSAGE FORM, QD (1 DF, QD (1 CAPSULE IN THE MORNING)   )
     Route: 065
  5. MULTAQ [Interacting]
     Active Substance: DRONEDARONE
     Indication: ARRHYTHMIA
     Dosage: 1 DOSAGE FORM, BID (1 DF, BID (1 TABLET IN THE MORNING AND ONE IN THE EVENING) )
     Route: 065
  6. ELIQUIS [Concomitant]
     Active Substance: APIXABAN
     Indication: HYPERTENSION
     Dosage: 1 DF, BID (1 TABLET IN THE MORNING AND ONE IN THE EVENING)
  7. IRBESARTAN. [Concomitant]
     Active Substance: IRBESARTAN
     Indication: HYPERTENSION
     Dosage: 0.5 DOSAGE FORM, QD (0.5 DF, QD (1/2 IN THE MORNING))
     Dates: start: 1999
  8. TORASEMIDE [Concomitant]
     Active Substance: TORSEMIDE
     Dosage: 0.5 DOSAGE FORM, QD (0.5 DF, QD (1/2 TABLET IN THE MORNING)
  9. AGOPTON [Concomitant]
     Active Substance: LANSOPRAZOLE
     Dosage: 1 DOSAGE FORM, QD (1 DF, QD (1 CAPSULE IN THE MORNING)

REACTIONS (13)
  - Asthenia [Recovered/Resolved]
  - Vertigo positional [Recovered/Resolved]
  - Syncope [Recovered/Resolved]
  - Tendon rupture [Recovered/Resolved]
  - General physical health deterioration [Recovered/Resolved]
  - Insomnia [Recovered/Resolved]
  - Dizziness [Recovered/Resolved]
  - Drug interaction [Unknown]
  - Ankle fracture [Recovered/Resolved]
  - Dyspnoea [Recovered/Resolved]
  - Anxiety [Unknown]
  - Weight decreased [Not Recovered/Not Resolved]
  - Headache [Unknown]
